FAERS Safety Report 6701577-3 (Version None)
Quarter: 2010Q2

REPORT INFORMATION
  Report Type: 
  Country: None (occurrence: None)
  Receive Date: 20100427
  Receipt Date: 20100413
  Transmission Date: 20101027
  Serious: Yes (Death)
  Sender: FDA-Public Use
  Company Number: 2010AC000265

PATIENT
  Sex: Female

DRUGS (2)
  1. DIGOXIN [Suspect]
     Indication: ATRIAL FIBRILLATION
     Dosage: 0.25 MG; PO
     Route: 048
     Dates: start: 20060701, end: 20080101
  2. DIGOXIN [Suspect]
     Indication: CARDIAC FAILURE CONGESTIVE
     Dosage: 0.25 MG; PO
     Route: 048
     Dates: start: 20060701, end: 20080101

REACTIONS (2)
  - MULTIPLE INJURIES [None]
  - PAIN [None]
